FAERS Safety Report 19979011 (Version 1)
Quarter: 2021Q4

REPORT INFORMATION
  Report Type: Report from Study
  Country: IL (occurrence: IL)
  Receive Date: 20211020
  Receipt Date: 20211020
  Transmission Date: 20220303
  Serious: Yes (Hospitalization)
  Sender: FDA-Public Use
  Company Number: IL-SA-2019SA136667

PATIENT
  Age: 73 Year
  Sex: Female

DRUGS (7)
  1. DUPILUMAB [Suspect]
     Active Substance: DUPILUMAB
     Indication: Dermatitis atopic
     Dosage: 300 MG, QOW
     Route: 058
     Dates: start: 20190123
  2. OMEPRAZOLE MAGNESIUM [Concomitant]
     Active Substance: OMEPRAZOLE MAGNESIUM
     Dosage: UNK, Q12H
  3. CREON [Concomitant]
     Active Substance: PANCRELIPASE AMYLASE\PANCRELIPASE LIPASE\PANCRELIPASE PROTEASE
  4. CALCIUM [Concomitant]
     Active Substance: CALCIUM
     Dosage: UNK
  5. LIPITOR [Concomitant]
     Active Substance: ATORVASTATIN CALCIUM
     Dosage: UNK
  6. MAGNESIUM [Concomitant]
     Active Substance: MAGNESIUM
     Dosage: UNK
  7. ASPIRIN [Concomitant]
     Active Substance: ASPIRIN
     Dosage: UNK

REACTIONS (8)
  - Hernia [Unknown]
  - Upper limb fracture [Not Recovered/Not Resolved]
  - Fall [Not Recovered/Not Resolved]
  - Pruritus [Not Recovered/Not Resolved]
  - Thermal burn [Not Recovered/Not Resolved]
  - Post procedural swelling [Unknown]
  - Procedural pain [Unknown]
  - Product use issue [Unknown]

NARRATIVE: CASE EVENT DATE: 20191101
